FAERS Safety Report 10666399 (Version 1)
Quarter: 2014Q4

REPORT INFORMATION
  Report Type: Spontaneous
  Country: US (occurrence: US)
  Receive Date: 20141220
  Receipt Date: 20141220
  Transmission Date: 20150529
  Serious: No
  Sender: FDA-Public Use
  Company Number: US-BAUSCH-SYM-2014-19567

PATIENT
  Age: 14 Year
  Sex: Female

DRUGS (1)
  1. XENAZINE [Suspect]
     Active Substance: TETRABENAZINE
     Indication: DYSTONIA
     Dosage: 3 TABLETS DAILY
     Route: 048
     Dates: start: 20131217

REACTIONS (1)
  - Drug ineffective [Not Recovered/Not Resolved]
